FAERS Safety Report 5301441-0 (Version None)
Quarter: 2007Q2

REPORT INFORMATION
  Report Type: 
  Country: None (occurrence: None)
  Receive Date: 20070418
  Receipt Date: 20070409
  Transmission Date: 20071010
  Serious: Yes (Hospitalization)
  Sender: FDA-Public Use
  Company Number: US-GENENTECH-237053

PATIENT
  Age: 60 Year
  Sex: Male
  Weight: 114.4 kg

DRUGS (10)
  1. RITUXAN [Suspect]
     Indication: NON-HODGKIN'S LYMPHOMA
     Dosage: 375 MG/M2, UNK
     Route: 042
     Dates: start: 20070207
  2. RITUXAN [Suspect]
     Indication: LYMPHOMA TRANSFORMATION
  3. DOXIL [Suspect]
     Indication: NON-HODGKIN'S LYMPHOMA
     Dosage: 30 MG/M2, UNK
     Route: 042
     Dates: start: 20070209
  4. ADVAIR DISKUS 100/50 [Concomitant]
     Indication: ASTHMA
     Dosage: UNK, BID
  5. ALBUTEROL [Concomitant]
     Indication: ASTHMA
     Dosage: UNK, PRN
  6. ASPIRIN [Concomitant]
     Indication: CORONARY ARTERY DISEASE
     Dosage: 81 MG, QD
  7. AZOPT [Concomitant]
     Indication: GLAUCOMA
     Dosage: UNK, BID
  8. BETOPTIC [Concomitant]
     Indication: GLAUCOMA
     Dosage: UNK, BID
  9. NIFEDIPINE [Concomitant]
     Indication: HYPERTENSION
     Dosage: 30 MG, QD
  10. XALATAN [Concomitant]
     Indication: GLAUCOMA

REACTIONS (3)
  - DEHYDRATION [None]
  - FATIGUE [None]
  - PYREXIA [None]
